FAERS Safety Report 5884512-X (Version None)
Quarter: 2008Q3

REPORT INFORMATION
  Report Type: 
  Country: None (occurrence: None)
  Receive Date: 20080916
  Receipt Date: 20080905
  Transmission Date: 20090109
  Serious: Yes (Hospitalization)
  Sender: FDA-Public Use
  Company Number: JP-JNJFOC-20080700954

PATIENT
  Sex: Female

DRUGS (13)
  1. CRAVIT [Suspect]
     Indication: BRONCHITIS
     Route: 048
  2. MUCODYNE [Suspect]
     Indication: BRONCHITIS
     Route: 048
  3. BLOPRESS [Concomitant]
     Route: 065
  4. SELOKEN [Concomitant]
     Route: 065
  5. LIPITOR [Concomitant]
     Route: 065
  6. FLUITRAN [Concomitant]
     Route: 065
  7. DIART [Concomitant]
     Route: 065
  8. ZYLORIC [Concomitant]
     Route: 065
  9. LASIX [Concomitant]
     Route: 065
  10. MEXITIL [Concomitant]
     Route: 065
  11. AMOBAN [Concomitant]
     Route: 065
  12. QVAR 40 [Concomitant]
     Route: 065
  13. MEPTIN [Concomitant]

REACTIONS (1)
  - DRUG ERUPTION [None]
